FAERS Safety Report 6925465-2 (Version None)
Quarter: 2010Q3

REPORT INFORMATION
  Report Type: 
  Country: None (occurrence: None)
  Receive Date: 20100813
  Receipt Date: 20100813
  Transmission Date: 20110219
  Serious: Yes (Other)
  Sender: FDA-Public Use
  Company Number: None

PATIENT
  Age: 9 Year
  Sex: Male
  Weight: 32.2054 kg

DRUGS (3)
  1. SINGULAIR [Suspect]
     Indication: RHINITIS ALLERGIC
     Dosage: 5MG DAILY PO
     Route: 048
     Dates: start: 20100101, end: 20100812
  2. NASONEX [Concomitant]
  3. ZYRTEC [Concomitant]

REACTIONS (2)
  - CRYING [None]
  - DEPRESSED MOOD [None]
